FAERS Safety Report 14740304 (Version 1)
Quarter: 2018Q2

REPORT INFORMATION
  Report Type: Spontaneous
  Country: US (occurrence: US)
  Receive Date: 20180410
  Receipt Date: 20180410
  Transmission Date: 20180711
  Serious: No
  Sender: FDA-Public Use
  Company Number: US-BAYER-2018-061888

PATIENT
  Age: 92 Year
  Sex: Male
  Weight: 91 kg

DRUGS (6)
  1. EYE DROPS [Concomitant]
     Active Substance: UNSPECIFIED INGREDIENT
  2. CLARITIN [Suspect]
     Active Substance: LORATADINE
     Indication: EAR DISCOMFORT
     Dosage: 1 DF, UNK
     Route: 048
     Dates: start: 20180326
  3. TENORMIN [Concomitant]
     Active Substance: ATENOLOL
  4. WARFARIN [Concomitant]
     Active Substance: WARFARIN
  5. LIPITOR [Concomitant]
     Active Substance: ATORVASTATIN CALCIUM
  6. WATER [WATER] [Concomitant]
     Dosage: UNK

REACTIONS (3)
  - Productive cough [Recovered/Resolved]
  - Productive cough [Recovered/Resolved]
  - Product use in unapproved indication [Unknown]

NARRATIVE: CASE EVENT DATE: 20180326
